FAERS Safety Report 9236433 (Version 1)
Quarter: 2013Q2

REPORT INFORMATION
  Report Type: Spontaneous
  Country: CH (occurrence: None)
  Receive Date: 20130415
  Receipt Date: 20130415
  Transmission Date: 20140414
  Serious: Yes (Death)
  Sender: FDA-Public Use
  Company Number: 20130178

PATIENT
  Age: 32 Year
  Sex: Female
  Weight: 132 kg

DRUGS (5)
  1. VENOFER (IRON SUCROSE INJECTION-VIFOR) (IRON SUCROSE INJECTION) 20 MG/ML [Suspect]
     Indication: HAEMOGLOBIN DECREASED
     Route: 042
     Dates: start: 20121129, end: 20121129
  2. VENOFER (IRON SUCROSE INJECTION-VIFOR) (IRON SUCROSE INJECTION) 20 MG/ML [Suspect]
     Indication: POST PROCEDURAL COMPLICATION
     Route: 042
     Dates: start: 20121129, end: 20121129
  3. MYPRODOL (CODEINE PHOSPHATE) [Concomitant]
  4. CLEXANE (ENOXAPARIN SODIUM) [Concomitant]
  5. VOLTAREN (DICLOFENAC) [Concomitant]

REACTIONS (2)
  - Malaise [None]
  - Pulmonary embolism [None]
